FAERS Safety Report 8600010-4 (Version None)
Quarter: 2012Q3

REPORT INFORMATION
  Report Type: 
  Country: None (occurrence: None)
  Receive Date: 20120816
  Receipt Date: 20120813
  Transmission Date: 20120928
  Serious: Yes (Hospitalization)
  Sender: FDA-Public Use
  Company Number: US-RB-043348-12

PATIENT
  Age: 62 Year
  Sex: Male

DRUGS (3)
  1. SUBOXONE [Suspect]
     Indication: DRUG DEPENDENCE
     Route: 060
     Dates: start: 20080101
  2. SUBOXONE [Suspect]
     Indication: DRUG DEPENDENCE
     Dosage: TAPERED DOWN TO 16 MG DAILY
     Route: 060
  3. OXYCONTIN [Suspect]
     Indication: PRODUCT USED FOR UNKNOWN INDICATION
     Dosage: DOSING DETAILS UNKNOWN
     Route: 065

REACTIONS (16)
  - DIZZINESS [None]
  - DEPRESSION [None]
  - HALLUCINATION [None]
  - FATIGUE [None]
  - RENAL FAILURE [None]
  - PARANOIA [None]
  - NARCOLEPSY [None]
  - ASTHENIA [None]
  - OVERDOSE [None]
  - AGORAPHOBIA [None]
  - ROAD TRAFFIC ACCIDENT [None]
  - DEHYDRATION [None]
  - NAUSEA [None]
  - DRUG WITHDRAWAL SYNDROME [None]
  - RESTLESS LEGS SYNDROME [None]
  - SLEEP APNOEA SYNDROME [None]
